FAERS Safety Report 25050684 (Version 1)
Quarter: 2025Q1

REPORT INFORMATION
  Report Type: Spontaneous
  Country: PL (occurrence: PL)
  Receive Date: 20250307
  Receipt Date: 20250307
  Transmission Date: 20250409
  Serious: Yes (Life-Threatening, Other)
  Sender: AUROBINDO
  Company Number: PL-002147023-NVSC2025PL023843

PATIENT
  Age: 41 Year
  Sex: Female

DRUGS (2)
  1. LETROZOLE [Suspect]
     Active Substance: LETROZOLE
     Indication: Breast cancer
     Dosage: 2.5 MILLIGRAM, ONCE A DAY
     Route: 048
  2. KISQALI [Suspect]
     Active Substance: RIBOCICLIB
     Indication: Breast cancer
     Dosage: 600 MILLIGRAM, ONCE A DAY
     Route: 065
     Dates: start: 20231220

REACTIONS (9)
  - Transaminases increased [Recovering/Resolving]
  - Biliary dilatation [Unknown]
  - Epstein-Barr virus antibody positive [Unknown]
  - Hepatotoxicity [Recovering/Resolving]
  - Blood bilirubin increased [Recovered/Resolved]
  - Neutrophil count decreased [Unknown]
  - Gamma-glutamyltransferase abnormal [Recovering/Resolving]
  - Hepatic steatosis [Unknown]
  - Biliary cyst [Unknown]

NARRATIVE: CASE EVENT DATE: 20240103
